FAERS Safety Report 5843566-7 (Version None)
Quarter: 2008Q3

REPORT INFORMATION
  Report Type: 
  Country: None (occurrence: None)
  Receive Date: 20080813
  Receipt Date: 20080422
  Transmission Date: 20090109
  Serious: No
  Sender: FDA-Public Use
  Company Number: A0724126A

PATIENT
  Age: 64 Year
  Sex: Female

DRUGS (8)
  1. COREG CR [Suspect]
     Indication: HYPERTENSION
     Dosage: 20MG PER DAY
     Route: 048
     Dates: start: 20080101
  2. DIOVAN [Suspect]
     Dosage: 80MG PER DAY
     Dates: start: 20080101
  3. PROZAC [Concomitant]
  4. CELEBREX [Concomitant]
  5. CRESTOR [Concomitant]
  6. HYTRIN [Concomitant]
  7. ASPIRIN [Concomitant]
  8. WATER PILL [Concomitant]

REACTIONS (4)
  - BACK PAIN [None]
  - INFLUENZA [None]
  - PAIN IN EXTREMITY [None]
  - WEIGHT INCREASED [None]
